FAERS Safety Report 12661671 (Version 1)
Quarter: 2016Q3

REPORT INFORMATION
  Report Type: Spontaneous
  Country: US (occurrence: US)
  Receive Date: 20160817
  Receipt Date: 20160817
  Transmission Date: 20161109
  Serious: No
  Sender: FDA-Public Use
  Company Number: US-PFIZER INC-2016385164

PATIENT
  Age: 47 Year
  Sex: Male
  Weight: 106.5 kg

DRUGS (1)
  1. VIAGRA [Suspect]
     Active Substance: SILDENAFIL CITRATE
     Dosage: 1 DF, UNK (1 PILL)
     Dates: start: 201603

REACTIONS (1)
  - Erection increased [Not Recovered/Not Resolved]

NARRATIVE: CASE EVENT DATE: 2016
